FAERS Safety Report 8814842 (Version 1)
Quarter: 2012Q4

REPORT INFORMATION
  Report Type: Report from Study
  Country: JP (occurrence: JP)
  Receive Date: 20120928
  Receipt Date: 20120928
  Transmission Date: 20130627
  Serious: Yes (Hospitalization)
  Sender: FDA-Public Use
  Company Number: JP-PFIZER INC-2012233495

PATIENT
  Age: 81 Year
  Sex: Female

DRUGS (10)
  1. AZULFIDINE [Suspect]
     Indication: RHEUMATOID ARTHRITIS
     Dosage: 1000 mg, 1x/day
     Route: 048
     Dates: start: 20080909
  2. TOCILIZUMAB [Suspect]
     Indication: RHEUMATOID ARTHRITIS
     Dosage: 272 mg, every 4 weeks
     Route: 042
     Dates: start: 20080814, end: 20080814
  3. TOCILIZUMAB [Suspect]
     Dosage: 280 mg, every 4 weeks
     Route: 042
     Dates: start: 20080908, end: 20080908
  4. TOCILIZUMAB [Suspect]
     Dosage: 304 mg, every 4 weeks
     Route: 042
     Dates: start: 20081225, end: 20110316
  5. FOSAMAX [Concomitant]
     Indication: OSTEOPOROSIS
     Dosage: 5 mg, once per week
     Route: 048
  6. FOSAMAX [Concomitant]
     Dosage: 35 mg, once per week
     Route: 048
  7. LOXONIN [Concomitant]
     Indication: RHEUMATOID ARTHRITIS
     Dosage: 180 mg, 1x/day
     Route: 048
     Dates: end: 20090120
  8. LOXONIN [Concomitant]
     Dosage: 120 mg, 1x/day
     Route: 048
     Dates: start: 20090121
  9. CIMETIDINE [Concomitant]
     Dosage: 400 mg, 1x/day
     Route: 048
  10. ALDACTONE [Concomitant]
     Dosage: 25 mg, 1x/day
     Route: 048

REACTIONS (1)
  - Pneumonia [Recovered/Resolved]
